FAERS Safety Report 6501202-0 (Version None)
Quarter: 2009Q4

REPORT INFORMATION
  Report Type: 
  Country: None (occurrence: None)
  Receive Date: 20091216
  Receipt Date: 20090922
  Transmission Date: 20100525
  Serious: No
  Sender: FDA-Public Use
  Company Number: A0808418A

PATIENT
  Age: 44 Year
  Sex: Male

DRUGS (2)
  1. NICOTINE POLACRILEX [Suspect]
     Dates: start: 20090825
  2. NICOTINE POLACRILEX [Suspect]
     Dates: start: 20090825

REACTIONS (2)
  - CONSTIPATION [None]
  - INSOMNIA [None]
